FAERS Safety Report 8192063 (Version 2)
Quarter: 2012Q4

REPORT INFORMATION
  Report Type: 
  Country: US (occurrence: US)
  Receive Date: 20111020
  Receipt Date: 20121002
  Transmission Date: 20130627
  Serious: No
  Sender: FDA-Public Use
  Company Number: US-BAYER-2011-101072

PATIENT
  Age: 66 Year
  Sex: Female

DRUGS (2)
  1. BETASERON [Suspect]
     Dosage: UNK
  2. COPAXONE [Suspect]

REACTIONS (2)
  - Injection site scar [None]
  - Pain [None]
